FAERS Safety Report 7471219-0 (Version None)
Quarter: 2011Q2

REPORT INFORMATION
  Report Type: 
  Country: None (occurrence: None)
  Receive Date: 20110510
  Receipt Date: 20110503
  Transmission Date: 20111010
  Serious: Yes (Other)
  Sender: FDA-Public Use
  Company Number: PHHY2011US22788

PATIENT
  Sex: Female
  Weight: 135 kg

DRUGS (6)
  1. REFRESH [Suspect]
     Dosage: UNK
     Dates: start: 20110320, end: 20110420
  2. ISOSORBIDE DINITRATE [Suspect]
     Dosage: UNK
  3. GENTEAL [Suspect]
     Dosage: UNK
  4. LAMISIL [Concomitant]
     Dosage: UNK
  5. ASPIRIN [Concomitant]
     Dosage: UNK
  6. THYROID HORMONES [Concomitant]
     Dosage: UNK

REACTIONS (4)
  - OEDEMA [None]
  - VISION BLURRED [None]
  - PTERYGIUM [None]
  - TEAR DISCOLOURATION [None]
